FAERS Safety Report 13340294 (Version 1)
Quarter: 2017Q1

REPORT INFORMATION
  Report Type: Spontaneous
  Country: US (occurrence: US)
  Receive Date: 20170316
  Receipt Date: 20170316
  Transmission Date: 20170428
  Serious: No
  Sender: FDA-Public Use
  Company Number: US-AUROBINDO-AUR-APL-2016-03381

PATIENT
  Sex: Male

DRUGS (1)
  1. CEFADROXIL CAPSULES USP 500 MG [Suspect]
     Active Substance: CEFADROXIL
     Indication: ORTHOPAEDIC PROCEDURE
     Dosage: UNK
     Route: 065

REACTIONS (5)
  - Tongue discolouration [Unknown]
  - Product odour abnormal [Unknown]
  - Paraesthesia oral [Unknown]
  - Tongue coated [None]
  - Toothache [Unknown]
